FAERS Safety Report 7572360-4 (Version None)
Quarter: 2011Q2

REPORT INFORMATION
  Report Type: 
  Country: None (occurrence: None)
  Receive Date: 20110624
  Receipt Date: 20110621
  Transmission Date: 20111010
  Serious: Yes (Hospitalization)
  Sender: FDA-Public Use
  Company Number: US-ABBOTT-11P-163-0734209-00

PATIENT
  Sex: Male

DRUGS (4)
  1. ANDROGEL [Suspect]
     Indication: BLOOD TESTOSTERONE DECREASED
     Dosage: 6 PUMPS; INCREASED; 1 IN 1 D
     Route: 061
  2. UNKNOWN MEDICATIONS [Concomitant]
     Indication: PRODUCT USED FOR UNKNOWN INDICATION
  3. ANDROGEL [Suspect]
     Dosage: 9 PUMPS INCREASED; 1 IN 1 D
     Route: 061
  4. ANDROGEL [Suspect]
     Dosage: 4 PUMPS; 1 IN 1 D
     Route: 061

REACTIONS (3)
  - URINARY TRACT INFECTION [None]
  - BLOOD TESTOSTERONE DECREASED [None]
  - URINARY BLADDER RUPTURE [None]
